FAERS Safety Report 5872429-6 (Version None)
Quarter: 2008Q3

REPORT INFORMATION
  Report Type: 
  Country: None (occurrence: None)
  Receive Date: 20080905
  Receipt Date: 20080828
  Transmission Date: 20090109
  Serious: Yes (Hospitalization, Other)
  Sender: FDA-Public Use
  Company Number: PHHY2008DK19598

PATIENT
  Sex: Female
  Weight: 49.5 kg

DRUGS (11)
  1. VOLTAREN [Suspect]
     Indication: PROCEDURAL PAIN
     Dosage: 50 MG
     Route: 054
     Dates: start: 20080814
  2. VOLTAREN [Suspect]
     Dosage: 150 MG
     Route: 054
     Dates: start: 20080816
  3. VOLTAREN [Suspect]
     Dosage: 50 MG
     Route: 054
     Dates: start: 20080817
  4. IBUPROFEN [Suspect]
     Indication: ARTHRALGIA
     Dosage: UNK
     Route: 048
     Dates: start: 20080501, end: 20080801
  5. BONYL [Suspect]
     Indication: PROCEDURAL PAIN
     Dosage: 500 MG /DAILY
     Route: 048
     Dates: start: 20080817
  6. SPIROCORT [Concomitant]
     Indication: ASTHMA
     Dosage: 400 MG/DAILY
     Dates: start: 20080501
  7. OXIS (FORMOTEROL) [Concomitant]
     Dosage: 9 UG/DAY
     Dates: start: 20080501
  8. ACETAMINOPHEN [Concomitant]
     Indication: PROCEDURAL PAIN
     Dosage: 3000 MG/DAY
     Route: 048
     Dates: start: 20080814
  9. SOLU-MEDROL [Concomitant]
     Indication: ASTHMA
     Dosage: 180 MG, UNK
     Route: 042
     Dates: start: 20080813, end: 20080814
  10. SOLU-MEDROL [Concomitant]
     Dosage: 40 MG, UNK
     Route: 042
     Dates: start: 20080813, end: 20080814
  11. PREDNISOLON [Concomitant]
     Indication: ASTHMA
     Dosage: 25 MG, QD
     Route: 048
     Dates: start: 20080813, end: 20080817

REACTIONS (10)
  - APPENDICITIS [None]
  - ASTHMA [None]
  - CONDITION AGGRAVATED [None]
  - CONSTIPATION [None]
  - CYSTITIS HAEMORRHAGIC [None]
  - HAEMATOCHEZIA [None]
  - HAEMATURIA [None]
  - KIDNEY INFECTION [None]
  - MENSTRUATION IRREGULAR [None]
  - PROCTITIS HAEMORRHAGIC [None]
